FAERS Safety Report 15322270 (Version 3)
Quarter: 2022Q2

REPORT INFORMATION
  Report Type: Spontaneous
  Country: FR (occurrence: FR)
  Receive Date: 20180827
  Receipt Date: 20220402
  Transmission Date: 20220721
  Serious: Yes (Other)
  Sender: FDA-Public Use
  Company Number: PHHY2018FR050849

PATIENT
  Age: 5 Decade
  Sex: Male

DRUGS (7)
  1. ITRACONAZOLE [Interacting]
     Active Substance: ITRACONAZOLE
     Indication: Histoplasmosis
     Dosage: 200 MG, Q12H
     Route: 048
  2. ITRACONAZOLE [Interacting]
     Active Substance: ITRACONAZOLE
     Indication: Meningitis histoplasma
     Dosage: 300 MG, Q8H
     Route: 048
  3. DARUNAVIR [Interacting]
     Active Substance: DARUNAVIR
     Indication: HIV infection
     Dosage: 1 DF, Q12H (DARUNAVIR: 600 MG; RITONAVIR: 100 MG)
     Route: 065
  4. MARAVIROC [Concomitant]
     Active Substance: MARAVIROC
     Indication: HIV infection
     Dosage: 150 MG, Q12H
     Route: 065
  5. AMPHOTERICIN B [Concomitant]
     Active Substance: AMPHOTERICIN B
     Indication: Histoplasmosis
     Dosage: 6 MG/KG (LIPOSOMAL)
     Route: 065
  6. AMPHOTERICIN B [Concomitant]
     Active Substance: AMPHOTERICIN B
     Indication: Meningitis histoplasma
  7. ABACAVIR [Concomitant]
     Active Substance: ABACAVIR
     Indication: HIV infection
     Dosage: 600 MG, QD (600/300 MG)
     Route: 065

REACTIONS (6)
  - Somnolence [Recovering/Resolving]
  - Diarrhoea [Recovered/Resolved]
  - Confusional state [Recovered/Resolved]
  - Drug interaction [Unknown]
  - Toxicity to various agents [Recovering/Resolving]
  - Neuropsychiatric symptoms [Recovering/Resolving]
